FAERS Safety Report 13576643 (Version 1)
Quarter: 2017Q2

REPORT INFORMATION
  Report Type: Spontaneous
  Country: US (occurrence: US)
  Receive Date: 20170524
  Receipt Date: 20170524
  Transmission Date: 20170830
  Serious: No
  Sender: FDA-Public Use
  Company Number: US-GLAXOSMITHKLINE-US2017073253

PATIENT
  Age: 67 Year
  Sex: Female

DRUGS (2)
  1. ALLI [Suspect]
     Active Substance: ORLISTAT
     Indication: WEIGHT LOSS DIET
     Dosage: UNK
     Dates: start: 201701, end: 201705
  2. ALLI [Suspect]
     Active Substance: ORLISTAT
     Indication: WEIGHT CONTROL

REACTIONS (2)
  - Product use in unapproved indication [Unknown]
  - Weight increased [Not Recovered/Not Resolved]
